FAERS Safety Report 7312859-9 (Version None)
Quarter: 2011Q1

REPORT INFORMATION
  Report Type: 
  Country: None (occurrence: None)
  Receive Date: 20110224
  Receipt Date: 20110125
  Transmission Date: 20110831
  Serious: Yes (Other)
  Sender: FDA-Public Use
  Company Number: PHHY2011FI05600

PATIENT
  Age: 40 Year
  Sex: Female

DRUGS (6)
  1. TEMESTA [Concomitant]
     Indication: MENTAL DISORDER
     Dosage: UNK
  2. SERETIDE [Concomitant]
     Indication: ASTHMA
     Dosage: UNK
  3. LEPONEX [Suspect]
     Indication: MENTAL DISORDER
     Dosage: 150 MG, QD
     Dates: start: 20090820
  4. SINGULAIR [Concomitant]
     Indication: ASTHMA
     Dosage: UNK
  5. PREDNISOLONE [Concomitant]
     Dosage: 2.5 MG, QD
  6. LITO [Concomitant]
     Indication: MENTAL DISORDER
     Dosage: 300 MG, UNK

REACTIONS (11)
  - INTERSTITIAL LUNG DISEASE [None]
  - PO2 DECREASED [None]
  - BRONCHIOLITIS [None]
  - SYNCOPE [None]
  - LEUKOCYTOSIS [None]
  - ASTHMA [None]
  - DYSPNOEA [None]
  - DYSPHONIA [None]
  - AUTOIMMUNE THYROIDITIS [None]
  - EMPHYSEMA [None]
  - FATIGUE [None]
